FAERS Safety Report 20824318 (Version 1)
Quarter: 2022Q2

REPORT INFORMATION
  Report Type: Spontaneous
  Country: US (occurrence: US)
  Receive Date: 20220513
  Receipt Date: 20220513
  Transmission Date: 20220721
  Serious: No
  Sender: FDA-Public Use
  Company Number: US-CELGENE-USA-20220204915

PATIENT
  Age: 69 Year
  Sex: Male
  Weight: 66 kg

DRUGS (2)
  1. REVLIMID [Suspect]
     Active Substance: LENALIDOMIDE
     Indication: Plasma cell myeloma
     Dosage: 25 MILLIGRAM
     Route: 048
     Dates: start: 201910
  2. REVLIMID [Suspect]
     Active Substance: LENALIDOMIDE
     Dosage: FREQ: 14 DAYS ON AND 7 DAYS OFF
     Route: 048
     Dates: start: 20210111

REACTIONS (2)
  - Full blood count abnormal [Recovering/Resolving]
  - White blood cell count decreased [Recovered/Resolved]
